FAERS Safety Report 21654624 (Version 1)
Quarter: 2022Q4

REPORT INFORMATION
  Report Type: Spontaneous
  Country: US (occurrence: US)
  Receive Date: 20221129
  Receipt Date: 20221129
  Transmission Date: 20230112
  Serious: No
  Sender: FDA-Public Use
  Company Number: None

PATIENT

DRUGS (1)
  1. DEXTROAMPHET SACCHARAT, AMPHET ASPARTATE, DEXTROAMPHET SULFATE AND AMP [Suspect]
     Active Substance: AMPHETAMINE ASPARTATE\AMPHETAMINE SULFATE\DEXTROAMPHETAMINE SACCHARATE\DEXTROAMPHETAMINE SULFATE
     Indication: Attention deficit hyperactivity disorder
     Route: 065

REACTIONS (10)
  - Mood altered [Unknown]
  - Abnormal behaviour [Unknown]
  - Headache [Unknown]
  - Fatigue [Unknown]
  - Confusional state [Unknown]
  - Drug ineffective [Unknown]
  - Anger [Unknown]
  - Irritability [Unknown]
  - Abdominal pain upper [Unknown]
  - Vision blurred [Unknown]
